FAERS Safety Report 14390034 (Version 1)
Quarter: 2018Q1

REPORT INFORMATION
  Report Type: Spontaneous
  Country: US (occurrence: US)
  Receive Date: 20180115
  Receipt Date: 20180115
  Transmission Date: 20180509
  Serious: No
  Sender: FDA-Public Use
  Company Number: US-MYLANLABS-2017M1083475

PATIENT
  Age: 70 Year
  Sex: Female
  Weight: 105 kg

DRUGS (1)
  1. FENTANYL TRANSDERMAL SYSTEM [Suspect]
     Active Substance: FENTANYL
     Indication: PAIN
     Dosage: 1 DF, UNK
     Route: 062
     Dates: start: 20170901

REACTIONS (5)
  - Product adhesion issue [Unknown]
  - Product size issue [Unknown]
  - Wrong technique in product usage process [Recovering/Resolving]
  - Incorrect drug administration duration [Recovered/Resolved]
  - No adverse event [Unknown]

NARRATIVE: CASE EVENT DATE: 20171207
